FAERS Safety Report 8323345-1 (Version None)
Quarter: 2012Q2

REPORT INFORMATION
  Report Type: 
  Country: None (occurrence: None)
  Receive Date: 20120430
  Receipt Date: 20120412
  Transmission Date: 20120825
  Serious: Yes (Death)
  Sender: FDA-Public Use
  Company Number: US-BAXTER-2012BAX001978

PATIENT
  Sex: Female

DRUGS (2)
  1. DIANEAL [Suspect]
     Indication: PERITONEAL DIALYSIS
     Route: 033
     Dates: end: 20120401
  2. DIANEAL [Suspect]
     Route: 033
     Dates: end: 20120401

REACTIONS (2)
  - CEREBRAL HAEMORRHAGE [None]
  - PERIPHERAL ARTERIAL OCCLUSIVE DISEASE [None]
